FAERS Safety Report 9262184 (Version 1)
Quarter: 2013Q2

REPORT INFORMATION
  Report Type: Spontaneous
  Country: SE (occurrence: SE)
  Receive Date: 20130430
  Receipt Date: 20130430
  Transmission Date: 20140414
  Serious: Yes (Hospitalization)
  Sender: FDA-Public Use
  Company Number: SE-AMGEN-SWESP2013023810

PATIENT
  Age: 70 Year
  Sex: Female

DRUGS (9)
  1. XGEVA [Suspect]
     Indication: METASTASES TO BONE
     Dosage: 120 MG, Q4WK
     Route: 058
     Dates: start: 20120716, end: 20130128
  2. METOPROLOL [Concomitant]
     Dosage: 50 MG, QD
  3. ENALAPRIL [Concomitant]
     Dosage: 5 MG, QD
  4. FELODIPIN [Concomitant]
     Dosage: 5 MG, QD
  5. EXEMESTAN [Concomitant]
     Dosage: 25 MG, QD
  6. CALCIUM                            /00060701/ [Concomitant]
  7. DOLCONTIN                          /00036302/ [Concomitant]
     Dosage: 10 MG, QD
  8. MORPHINE [Concomitant]
     Dosage: 10 MG, QD PRN
  9. STILNOCT [Concomitant]
     Dosage: 10 MG, QD HS

REACTIONS (4)
  - Arthritis bacterial [Recovering/Resolving]
  - C-reactive protein increased [Recovering/Resolving]
  - Oedema peripheral [Recovering/Resolving]
  - Pain in extremity [Recovering/Resolving]
